FAERS Safety Report 6215533-5 (Version None)
Quarter: 2009Q2

REPORT INFORMATION
  Report Type: 
  Country: None (occurrence: None)
  Receive Date: 20090605
  Receipt Date: 20070926
  Transmission Date: 20091009
  Serious: Yes (Other)
  Sender: FDA-Public Use
  Company Number: US-ASTRAZENECA-2006UW22940

PATIENT
  Age: 540 Month
  Sex: Female
  Weight: 105.2 kg

DRUGS (18)
  1. SEROQUEL [Suspect]
     Indication: NIGHTMARE
     Dosage: 100-600MG
     Route: 048
     Dates: start: 19980101, end: 20010101
  2. SEROQUEL [Suspect]
     Indication: DEPRESSION
     Dosage: 100-600MG
     Route: 048
     Dates: start: 19980101, end: 20010101
  3. SEROQUEL [Suspect]
     Route: 048
     Dates: start: 19990630
  4. SEROQUEL [Suspect]
     Route: 048
     Dates: start: 19990630
  5. SEROQUEL [Suspect]
     Dosage: 100MG - 600MG
     Route: 048
  6. SEROQUEL [Suspect]
     Dosage: 100MG - 600MG
     Route: 048
  7. RISPERDAL [Concomitant]
     Dates: start: 19970101
  8. ZOLOFT [Concomitant]
     Route: 048
     Dates: start: 20060425
  9. KLONOPIN [Concomitant]
     Route: 048
     Dates: start: 20060425
  10. ELAVIL [Concomitant]
     Route: 048
     Dates: start: 20060425
  11. OMEPRAZOLE [Concomitant]
     Route: 048
     Dates: start: 20060425
  12. ADVAIR HFA [Concomitant]
     Dosage: 250/50 TWO TIMES A DAY
     Route: 055
     Dates: start: 20040614
  13. PREDNISONE [Concomitant]
     Route: 048
     Dates: start: 20040614
  14. DIOVAN HCT [Concomitant]
     Dates: start: 20040614
  15. METFORMIN HYDROCHLORIDE [Concomitant]
     Route: 048
     Dates: start: 20040614
  16. LEVAQUIN [Concomitant]
     Route: 048
     Dates: start: 20040614
  17. HUMULIN R [Concomitant]
     Dates: start: 20040614
  18. NICOTROL [Concomitant]
     Dates: start: 20040614

REACTIONS (9)
  - CARDIAC FAILURE CONGESTIVE [None]
  - DIABETIC COMA [None]
  - DIABETIC COMPLICATION [None]
  - DIABETIC NEUROPATHY [None]
  - NEUROPATHY PERIPHERAL [None]
  - PNEUMONIA [None]
  - TYPE 1 DIABETES MELLITUS [None]
  - TYPE 2 DIABETES MELLITUS [None]
  - UNRESPONSIVE TO STIMULI [None]
